FAERS Safety Report 10167483 (Version 1)
Quarter: 2014Q2

REPORT INFORMATION
  Report Type: Spontaneous
  Country: US (occurrence: US)
  Receive Date: 20140512
  Receipt Date: 20140512
  Transmission Date: 20141212
  Serious: Yes (Other)
  Sender: FDA-Public Use
  Company Number: US-BAYER-2014-066327

PATIENT
  Age: 43 Year
  Sex: Female
  Weight: 74.83 kg

DRUGS (5)
  1. ALKA-SELTZER PLUS SPARKLING ORIGINAL COLD FORMULA [Suspect]
     Indication: RHINORRHOEA
     Dosage: 2 DF, 2-3 TIMES DAILY
     Route: 048
     Dates: start: 2013
  2. ALKA-SELTZER PLUS SPARKLING ORIGINAL COLD FORMULA [Suspect]
     Indication: DEPENDENCE
     Dosage: 2 DF, 2-3 TIMES DAILY
     Route: 048
     Dates: start: 2013
  3. LANTUS [Concomitant]
  4. LISINOPRIL [Concomitant]
  5. HUMALOG [Concomitant]

REACTIONS (4)
  - Incorrect drug administration duration [None]
  - Drug dependence [Not Recovered/Not Resolved]
  - Wrong technique in drug usage process [None]
  - Drug abuse [None]
